FAERS Safety Report 13651657 (Version 3)
Quarter: 2017Q3

REPORT INFORMATION
  Report Type: Report from Study
  Country: US (occurrence: US)
  Receive Date: 20170614
  Receipt Date: 20170919
  Transmission Date: 20171127
  Serious: Yes (Death, Other)
  Sender: FDA-Public Use
  Company Number: PHEH2017US017131

PATIENT
  Age: 74 Year
  Sex: Female
  Weight: 44.45 kg

DRUGS (1)
  1. AFINITOR [Suspect]
     Active Substance: EVEROLIMUS
     Indication: BREAST CANCER
     Dosage: 10 MG, UNK
     Route: 048

REACTIONS (3)
  - Haemoglobin decreased [Unknown]
  - Death [Fatal]
  - Metastases to bone [Unknown]

NARRATIVE: CASE EVENT DATE: 20170728
